FAERS Safety Report 6637989-6 (Version None)
Quarter: 2010Q1

REPORT INFORMATION
  Report Type: 
  Country: None (occurrence: None)
  Receive Date: 20100317
  Receipt Date: 20100309
  Transmission Date: 20100710
  Serious: Yes (Hospitalization)
  Sender: FDA-Public Use
  Company Number: FR-SANOFI-AVENTIS-2010SA013768

PATIENT
  Age: 85 Year
  Sex: Male

DRUGS (9)
  1. LOVENOX [Suspect]
     Indication: ISCHAEMIC STROKE
     Route: 058
     Dates: start: 20090801, end: 20090814
  2. PREVISCAN [Suspect]
     Indication: ISCHAEMIC STROKE
     Route: 048
     Dates: start: 20090806, end: 20090818
  3. AUGMENTIN '125' [Suspect]
     Route: 048
     Dates: start: 20090804, end: 20090824
  4. TAHOR [Concomitant]
     Route: 048
  5. ESOMEPRAZOLE [Concomitant]
     Route: 048
  6. DOLIPRANE [Concomitant]
     Route: 065
  7. ESIDRIX [Concomitant]
     Route: 048
  8. AMILORIDE HCL AND HYDROCHLOROTHIAZIDE [Concomitant]
     Route: 048
  9. ALLOPURINOL [Concomitant]
     Route: 048

REACTIONS (2)
  - INTERNATIONAL NORMALISED RATIO INCREASED [None]
  - MUSCLE HAEMORRHAGE [None]
